FAERS Safety Report 12716629 (Version 2)
Quarter: 2017Q1

REPORT INFORMATION
  Report Type: Spontaneous
  Country: US (occurrence: US)
  Receive Date: 20160906
  Receipt Date: 20170130
  Transmission Date: 20170428
  Serious: Yes (Hospitalization, Other)
  Sender: FDA-Public Use
  Company Number: US-PFIZER INC-2016412162

PATIENT
  Age: 56 Year
  Sex: Female
  Weight: 93.89 kg

DRUGS (2)
  1. VFEND [Suspect]
     Active Substance: VORICONAZOLE
     Indication: PULMONARY MYCOSIS
     Dosage: 200 MG, 2X/DAY
     Route: 048
     Dates: start: 201509, end: 201609
  2. VFEND [Suspect]
     Active Substance: VORICONAZOLE
     Indication: PNEUMONIA FUNGAL

REACTIONS (8)
  - Condition aggravated [Unknown]
  - Diarrhoea [Recovering/Resolving]
  - Addison^s disease [Unknown]
  - Malaise [Recovering/Resolving]
  - Hyperglycaemia [Recovered/Resolved]
  - Diabetic coma [Unknown]
  - Loss of consciousness [Unknown]
  - Dehydration [Unknown]

NARRATIVE: CASE EVENT DATE: 201608
